FAERS Safety Report 4724534-5 (Version None)
Quarter: 2005Q3

REPORT INFORMATION
  Report Type: 
  Country: None (occurrence: None)
  Receive Date: 20050721
  Receipt Date: 20050706
  Transmission Date: 20060218
  Serious: Yes (Death, Hospitalization)
  Sender: FDA-Public Use
  Company Number: 2005-0008372

PATIENT
  Age: 48 Year
  Sex: Male

DRUGS (6)
  1. VIREAD [Suspect]
     Indication: HIV INFECTION
     Dosage: SEE IMAGE, ORAL
     Route: 048
     Dates: start: 20030201, end: 20050201
  2. VIREAD [Suspect]
     Indication: HIV INFECTION
     Dosage: SEE IMAGE, ORAL
     Route: 048
     Dates: start: 20050519
  3. VIDEX [Concomitant]
  4. ZERIT [Concomitant]
  5. EPIVIR [Concomitant]
  6. KALETRA [Concomitant]

REACTIONS (16)
  - ASCITES INFECTION [None]
  - ASTERIXIS [None]
  - BACTERIAL INFECTION [None]
  - CYTOLYTIC HEPATITIS [None]
  - GENERAL PHYSICAL HEALTH DETERIORATION [None]
  - HEPATIC ENCEPHALOPATHY [None]
  - HEPATITIS ACUTE [None]
  - HEPATITIS B [None]
  - HYPOGLYCAEMIA [None]
  - INFLUENZA LIKE ILLNESS [None]
  - LOSS OF CONSCIOUSNESS [None]
  - NOSOCOMIAL INFECTION [None]
  - OEDEMA [None]
  - OEDEMA PERIPHERAL [None]
  - RESUSCITATION [None]
  - SEPTIC SHOCK [None]
